FAERS Safety Report 13502763 (Version 1)
Quarter: 2017Q2

REPORT INFORMATION
  Report Type: Spontaneous
  Country: JP (occurrence: JP)
  Receive Date: 20170502
  Receipt Date: 20170502
  Transmission Date: 20170830
  Serious: Yes (Hospitalization, Other)
  Sender: FDA-Public Use
  Company Number: JP-BRISTOL-MYERS SQUIBB COMPANY-BMS-2017-036449

PATIENT
  Age: 71 Year
  Sex: Female

DRUGS (2)
  1. METGLUCO [Suspect]
     Active Substance: METFORMIN HYDROCHLORIDE
     Indication: PRODUCT USED FOR UNKNOWN INDICATION
     Route: 048
  2. CIBENZOLINE SUCCINATE [Suspect]
     Active Substance: CIFENLINE SUCCINATE
     Indication: PRODUCT USED FOR UNKNOWN INDICATION
     Route: 065

REACTIONS (14)
  - Anti-glomerular basement membrane antibody [Recovering/Resolving]
  - Haematuria [Not Recovered/Not Resolved]
  - Toxicity to various agents [Unknown]
  - Feeling abnormal [Unknown]
  - Depressed level of consciousness [Unknown]
  - Glomerulonephritis [Not Recovered/Not Resolved]
  - Glomerulonephritis rapidly progressive [Unknown]
  - Hypoglycaemia [Recovered/Resolved]
  - Antineutrophil cytoplasmic antibody positive [Unknown]
  - Renal impairment [Not Recovered/Not Resolved]
  - Urinary tract infection [Unknown]
  - Insulin C-peptide increased [Unknown]
  - Sepsis [Recovering/Resolving]
  - Blood insulin increased [Unknown]
